FAERS Safety Report 14161260 (Version 2)
Quarter: 2017Q4

REPORT INFORMATION
  Report Type: Spontaneous
  Country: AU (occurrence: AU)
  Receive Date: 20171106
  Receipt Date: 20171211
  Transmission Date: 20180321
  Serious: Yes (Other)
  Sender: FDA-Public Use
  Company Number: AU-PFIZER INC-2017437199

PATIENT
  Age: 64 Year
  Sex: Male

DRUGS (11)
  1. THIAMINE. [Concomitant]
     Active Substance: THIAMINE
     Dosage: 100 MG, 1X/DAY
     Dates: start: 20170918
  2. ASPIRIN /00002701/ [Concomitant]
     Active Substance: ASPIRIN
     Dosage: 100 MG, 1X/DAY
     Dates: start: 20170918
  3. PROCAINE PENICILLIN /00000902/ [Concomitant]
     Indication: LOWER RESPIRATORY TRACT INFECTION
     Dosage: 1.5 G, DAILY
     Route: 030
     Dates: start: 20171007, end: 20171009
  4. PERINDOPRIL ARGININE [Concomitant]
     Active Substance: PERINDOPRIL ARGININE
     Dosage: 5 MG, 1X/DAY
     Dates: start: 20170918
  5. BISOPROLOL [Concomitant]
     Active Substance: BISOPROLOL
     Dosage: 1.25 MG, 1X/DAY
     Route: 048
     Dates: start: 20170918
  6. GENTAMICIN. [Suspect]
     Active Substance: GENTAMICIN
     Indication: PNEUMONIA
  7. GLYCERYL TRINITRATE [Concomitant]
     Active Substance: NITROGLYCERIN
     Indication: CHEST PAIN
     Dosage: 1 SPRAY, AS NEEDED
     Route: 060
     Dates: start: 20170918
  8. GENTAMICIN. [Suspect]
     Active Substance: GENTAMICIN
     Indication: LOWER RESPIRATORY TRACT INFECTION
     Dosage: 240 MG, UNK
     Route: 042
     Dates: start: 20171004
  9. TRAMADOL. [Concomitant]
     Active Substance: TRAMADOL
     Dosage: 50 MG, 1X/DAY
     Route: 048
     Dates: start: 20170918
  10. FLUTICASONE PROPRIONATE [Concomitant]
     Active Substance: FLUTICASONE PROPIONATE
     Dosage: 2 PUFFS, 2X/DAY
     Dates: start: 20170918
  11. SALBUTAMOL [Concomitant]
     Active Substance: ALBUTEROL
     Dosage: 2-4 PUFFS, AS NEEDED
     Dates: start: 20170918

REACTIONS (3)
  - Bradycardia [Recovered/Resolved]
  - Product use issue [Unknown]
  - Mouth swelling [Recovered/Resolved]

NARRATIVE: CASE EVENT DATE: 20171004
